FAERS Safety Report 23482412 (Version 1)
Quarter: 2024Q1

REPORT INFORMATION
  Report Type: Spontaneous
  Country: US (occurrence: None)
  Receive Date: 20240205
  Receipt Date: 20240205
  Transmission Date: 20240409
  Serious: Yes (Hospitalization)
  Sender: FDA-Public Use
  Company Number: None

PATIENT
  Sex: Female

DRUGS (2)
  1. KEYTRUDA [Suspect]
     Active Substance: PEMBROLIZUMAB
     Indication: Endometrial cancer
     Dosage: FREQUENCY : MONTHLY;?
     Route: 042
     Dates: start: 202308
  2. LENVIMA [Concomitant]
     Active Substance: LENVATINIB

REACTIONS (2)
  - Vomiting [None]
  - Impaired gastric emptying [None]
